FAERS Safety Report 5954843-3 (Version None)
Quarter: 2008Q4

REPORT INFORMATION
  Report Type: 
  Country: None (occurrence: None)
  Receive Date: 20081112
  Receipt Date: 20081028
  Transmission Date: 20090506
  Serious: Yes (Other)
  Sender: FDA-Public Use
  Company Number: 2008EU002301

PATIENT
  Age: 2 Year
  Sex: Male
  Weight: 5.7 kg

DRUGS (5)
  1. PROTOPIC [Suspect]
     Indication: ECZEMA
     Dosage: /D, TOPICAL
     Route: 061
     Dates: start: 20080414, end: 20081008
  2. COCOIS (SULFUR) [Concomitant]
  3. DERMOL (ISOPROPYL MYRISTATE) [Concomitant]
  4. DIPROBASE (PARAFFIN) [Concomitant]
  5. ELOCON [Concomitant]

REACTIONS (1)
  - HIRSUTISM [None]
